FAERS Safety Report 8472946-9 (Version None)
Quarter: 2012Q2

REPORT INFORMATION
  Report Type: 
  Country: None (occurrence: None)
  Receive Date: 20120627
  Receipt Date: 20120621
  Transmission Date: 20120825
  Serious: Yes (Hospitalization, Other)
  Sender: FDA-Public Use
  Company Number: US-PFIZER INC-2010014391

PATIENT
  Sex: Male
  Weight: 92.9 kg

DRUGS (13)
  1. LIPITOR [Suspect]
     Dosage: UNK
  2. TEMODAR [Concomitant]
     Dosage: 150 MG/M2 FOR 5 DAYS, ALSO REPORTED AS (3X100MG TABS ONCE DAILY FOR 5 DAYS EVERY 28 DAYS)
     Dates: start: 20070401
  3. KEPPRA [Concomitant]
     Dosage: 150 MG, UNK
  4. LAMICTAL [Concomitant]
     Dosage: 100 MG, 2X/DAY
  5. ZOLOFT [Concomitant]
     Dosage: 100 MG, 1X/DAY (AT NIGHT)
     Route: 048
  6. DECADRON [Concomitant]
     Dosage: 4 MG, 2X/DAY
  7. DEXAMETHASONE [Concomitant]
     Dosage: 1 MG, UNK
  8. LIPITOR [Suspect]
     Indication: BLOOD CHOLESTEROL INCREASED
     Dosage: 20 MG, 1X/DAY
     Route: 048
     Dates: start: 20091101, end: 20091201
  9. ASPIRIN [Concomitant]
     Dosage: 325 MG
  10. XANAX [Concomitant]
     Dosage: UNK
  11. KEPPRA [Concomitant]
     Dosage: 150 MG, 2X/DAY
  12. DILANTIN [Concomitant]
     Dosage: 400 MG, 2X/DAY (IN THE MORNING AND AT NIGHT)
  13. FOLIC ACID [Concomitant]
     Dosage: 1 MG, UNK

REACTIONS (52)
  - STAPHYLOCOCCAL INFECTION [None]
  - URINARY TRACT INFECTION [None]
  - MUSCULAR WEAKNESS [None]
  - MEMORY IMPAIRMENT [None]
  - IMPAIRED DRIVING ABILITY [None]
  - CHEST DISCOMFORT [None]
  - FLATULENCE [None]
  - THROAT CANCER [None]
  - HEMIPARESIS [None]
  - GAIT DISTURBANCE [None]
  - SPEECH DISORDER [None]
  - DIZZINESS [None]
  - ASTHENIA [None]
  - ARTHRALGIA [None]
  - FATIGUE [None]
  - OEDEMA PERIPHERAL [None]
  - INSOMNIA [None]
  - WEIGHT INCREASED [None]
  - CONVULSION [None]
  - NEUROMYOPATHY [None]
  - SWELLING [None]
  - BURNING SENSATION [None]
  - DISTURBANCE IN ATTENTION [None]
  - FACIAL BONES FRACTURE [None]
  - PARAESTHESIA [None]
  - VISUAL IMPAIRMENT [None]
  - FALL [None]
  - PAIN [None]
  - LIMB INJURY [None]
  - DIARRHOEA [None]
  - INTENTIONAL SELF-INJURY [None]
  - HAEMORRHAGE [None]
  - COORDINATION ABNORMAL [None]
  - ABASIA [None]
  - PAIN IN EXTREMITY [None]
  - DYSPEPSIA [None]
  - MUSCULOSKELETAL DISORDER [None]
  - HYPOAESTHESIA [None]
  - CONFUSIONAL STATE [None]
  - ABDOMINAL PAIN UPPER [None]
  - FEELING ABNORMAL [None]
  - THINKING ABNORMAL [None]
  - SINUS DISORDER [None]
  - RHINORRHOEA [None]
  - MALAISE [None]
  - CONSTIPATION [None]
  - BALANCE DISORDER [None]
  - INFLUENZA [None]
  - EPISTAXIS [None]
  - MYALGIA [None]
  - HEADACHE [None]
  - RASH [None]
